APPROVED DRUG PRODUCT: DALFAMPRIDINE
Active Ingredient: DALFAMPRIDINE
Strength: 10MG
Dosage Form/Route: TABLET, EXTENDED RELEASE;ORAL
Application: A206646 | Product #001
Applicant: HIKMA PHARMACEUTICALS USA INC
Approved: Oct 24, 2018 | RLD: No | RS: No | Type: DISCN